FAERS Safety Report 16094783 (Version 1)
Quarter: 2019Q1

REPORT INFORMATION
  Report Type: Spontaneous
  Country: US (occurrence: US)
  Receive Date: 20190320
  Receipt Date: 20190320
  Transmission Date: 20190418
  Serious: No
  Sender: FDA-Public Use
  Company Number: US-009507513-1903USA000982

PATIENT
  Sex: Female

DRUGS (1)
  1. NASONEX [Suspect]
     Active Substance: MOMETASONE FUROATE
     Dosage: UNK, ROUTE REPORTED AS NASAL INHALER
     Dates: start: 1989

REACTIONS (4)
  - Sinusitis [Unknown]
  - Malaise [Unknown]
  - Cough [Unknown]
  - Intentional product misuse [Unknown]
